FAERS Safety Report 15431447 (Version 1)
Quarter: 2018Q3

REPORT INFORMATION
  Report Type: Spontaneous
  Country: IT (occurrence: IT)
  Receive Date: 20180926
  Receipt Date: 20180926
  Transmission Date: 20181010
  Serious: Yes (Hospitalization, Other)
  Sender: FDA-Public Use
  Company Number: IT-MYLANLABS-2018M1070201

PATIENT

DRUGS (3)
  1. NORVASC [Suspect]
     Active Substance: AMLODIPINE BESYLATE
     Indication: PRODUCT USED FOR UNKNOWN INDICATION
     Dosage: 5 MG, 14 TIMES IN ONE INTAKE
     Route: 048
     Dates: start: 20180424, end: 20180424
  2. TARDYFER [Suspect]
     Active Substance: FERROUS SULFATE
     Indication: PRODUCT USED FOR UNKNOWN INDICATION
     Dosage: 80 MG, 9 TIMES IN ONE INTAKE
     Route: 048
     Dates: start: 20180424, end: 20180424
  3. CIPROFLOXACIN. [Suspect]
     Active Substance: CIPROFLOXACIN
     Indication: PRODUCT USED FOR UNKNOWN INDICATION
     Dosage: 500 MG, SIX TIMES IN ONE INTAKE
     Route: 048
     Dates: start: 20180424, end: 20180424

REACTIONS (5)
  - Gastritis erosive [Unknown]
  - Intentional overdose [Recovered/Resolved]
  - Haematemesis [Unknown]
  - Sluggishness [Unknown]
  - Blood iron increased [Recovering/Resolving]

NARRATIVE: CASE EVENT DATE: 20180424
